FAERS Safety Report 6234736-7 (Version None)
Quarter: 2009Q2

REPORT INFORMATION
  Report Type: 
  Country: None (occurrence: None)
  Receive Date: 20090615
  Receipt Date: 20090218
  Transmission Date: 20091009
  Serious: No
  Sender: FDA-Public Use
  Company Number: DSA_33244_2009

PATIENT
  Sex: Female

DRUGS (3)
  1. XENAZINE [Suspect]
     Indication: HUNTINGTON'S CHOREA
     Dosage: 12.5 MG QD, 12.5 MG BID, 12.5 MG TID
     Dates: start: 20090119, end: 20090125
  2. XENAZINE [Suspect]
     Indication: HUNTINGTON'S CHOREA
     Dosage: 12.5 MG QD, 12.5 MG BID, 12.5 MG TID
     Dates: start: 20090126, end: 20090208
  3. XENAZINE [Suspect]
     Indication: HUNTINGTON'S CHOREA
     Dosage: 12.5 MG QD, 12.5 MG BID, 12.5 MG TID
     Dates: start: 20090209, end: 20090214

REACTIONS (3)
  - DEPRESSION [None]
  - FATIGUE [None]
  - INSOMNIA [None]
